FAERS Safety Report 21640216 (Version 1)
Quarter: 2022Q4

REPORT INFORMATION
  Report Type: Spontaneous
  Country: DE (occurrence: DE)
  Receive Date: 20221124
  Receipt Date: 20221124
  Transmission Date: 20230113
  Serious: Yes (Life-Threatening, Hospitalization)
  Sender: FDA-Public Use
  Company Number: DE-002147023-NVSC2022DE264366

PATIENT
  Age: 14 Year

DRUGS (4)
  1. LAMOTRIGINE [Suspect]
     Active Substance: LAMOTRIGINE
     Indication: Intellectual disability
     Dosage: UNK
     Route: 065
  2. MELPERONE [Suspect]
     Active Substance: MELPERONE
     Indication: Intellectual disability
     Dosage: UNK
     Route: 065
  3. TIAPRIDE [Suspect]
     Active Substance: TIAPRIDE
     Indication: Intellectual disability
     Dosage: UNK
     Route: 065
  4. ZUCLOPENTHIXOL [Suspect]
     Active Substance: ZUCLOPENTHIXOL
     Indication: Intellectual disability
     Dosage: UNK
     Route: 065

REACTIONS (3)
  - Aplastic anaemia [Unknown]
  - Product use in unapproved indication [Unknown]
  - Product use issue [Unknown]
